FAERS Safety Report 9505356 (Version 1)
Quarter: 2013Q1

REPORT INFORMATION
  Report Type: Spontaneous
  Country: US (occurrence: None)
  Receive Date: 20130220
  Receipt Date: 20130220
  Transmission Date: 20140127
  Serious: No
  Sender: FDA-Public Use
  Company Number: 1000040589

PATIENT
  Age: 51 Year
  Sex: Male

DRUGS (8)
  1. VIIBRYD VILAZODONE HYDROCHLORIDE 10 MILLIGRAM, TABLETS [Suspect]
     Indication: DEPRESSION
     Dosage: 10 MG (10 MG, 1 IN 1 D), ORAL
     Route: 048
  2. VIIBRYD VILAZODONE HYDROCHLORIDE 40 MILLIGRAM, TABLETS [Suspect]
     Indication: DEPRESSION
     Dosage: 40 MG (40 MG, 1 IN 1 D), ORAL
     Route: 048
  3. LISINOPRIL LISINOPRIL LISINOPRIL [Concomitant]
  4. AMBIEN ZOLPIDEM TARTRATE ZOLPIDEM TARTRATE [Concomitant]
  5. HYDROCHLOROTHIAZIDE HYDROCHLOROTHIAZIDE HYDROCHLOROTHIAZIDE [Concomitant]
  6. LOVASA OMEGA-3-ACID ETHYL ESTERS OMEGA-3-ACID ETHYL ESTERS [Concomitant]
  7. REQUIP ROPINIROLE HYDROCHLORIDE ROBINIROLE HYDROCHLORIDE [Concomitant]
  8. GABAPENTIN GABAPENTIN GABAPENTIN [Concomitant]

REACTIONS (2)
  - Abnormal dreams [None]
  - Nightmare [None]
